FAERS Safety Report 4578585-4 (Version None)
Quarter: 2005Q1

REPORT INFORMATION
  Report Type: 
  Country: None (occurrence: None)
  Receive Date: 20050209
  Receipt Date: 20050125
  Transmission Date: 20050727
  Serious: No
  Sender: FDA-Public Use
  Company Number: 10023

PATIENT
  Age: 16 Year
  Sex: Female

DRUGS (7)
  1. METHOTREXATE [Suspect]
     Indication: JUVENILE ARTHRITIS
     Dosage: 15 MG WEEKLY, SC
     Route: 058
     Dates: start: 19971201, end: 20020615
  2. METHOTREXATE [Suspect]
     Indication: JUVENILE ARTHRITIS
     Dosage: 15 MG WEEKLY, SC
     Route: 058
     Dates: start: 20030901
  3. ETANERCEPT [Suspect]
     Indication: JUVENILE ARTHRITIS
     Dosage: 40 MG WEEKLY, SC
     Route: 058
     Dates: end: 20010216
  4. ETANERCEPT [Suspect]
     Indication: JUVENILE ARTHRITIS
     Dosage: 40 MG WEEKLY, SC
     Route: 058
     Dates: start: 20040601
  5. MELOXICAM [Concomitant]
  6. FOLIC ACID [Concomitant]
  7. PREDNISOLONE [Concomitant]

REACTIONS (4)
  - DYSMENORRHOEA [None]
  - INJECTION SITE MASS [None]
  - INJECTION SITE REACTION [None]
  - MENOMETRORRHAGIA [None]
